FAERS Safety Report 21862735 (Version 1)
Quarter: 2023Q1

REPORT INFORMATION
  Report Type: Spontaneous
  Country: IR (occurrence: IR)
  Receive Date: 20230114
  Receipt Date: 20230114
  Transmission Date: 20230417
  Serious: Yes (Other)
  Sender: FDA-Public Use
  Company Number: IR-AMGEN-IRNSP2023003477

PATIENT
  Age: 31 Year
  Sex: Male

DRUGS (7)
  1. FILGRASTIM [Suspect]
     Active Substance: FILGRASTIM
     Indication: Neutropenia
     Dosage: UNK
     Route: 065
  2. FILGRASTIM [Suspect]
     Active Substance: FILGRASTIM
     Dosage: 300 MILLIGRAM
     Route: 065
  3. CISPLATIN [Concomitant]
     Active Substance: CISPLATIN
     Indication: Metastatic malignant melanoma
     Dosage: 40 MILLIGRAM, Q3WK, DAYS 1-3, GIVEN IN THREE WEEKLY CYCLES
  4. DACARBAZINE [Concomitant]
     Active Substance: DACARBAZINE
     Indication: Metastatic malignant melanoma
     Dosage: 40 MILLIGRAM, Q3WK, DAYS 1-3, GIVEN IN THREE WEEKLY CYCLES
  5. BICNU [Concomitant]
     Active Substance: CARMUSTINE
     Indication: Metastatic malignant melanoma
     Dosage: 120 MILLIGRAM, CYCLICAL, ON DAY 1 AND 80 MG ON DAY 2 OF CYCLES 1, 3, AND 6
  6. BICNU [Concomitant]
     Active Substance: CARMUSTINE
     Dosage: 80 MILLIGRAM, CYCLICAL, ON DAY 1 AND 80 MG ON DAY 2 OF CYCLES 1, 3, AND 6
  7. TAMOXIFEN [Concomitant]
     Active Substance: TAMOXIFEN
     Indication: Metastatic malignant melanoma
     Dosage: 20 MILLIGRAM, QD

REACTIONS (2)
  - Neutropenia [Unknown]
  - Metastatic malignant melanoma [Recovered/Resolved]
